FAERS Safety Report 16811397 (Version 13)
Quarter: 2019Q4

REPORT INFORMATION
  Report Type: Spontaneous
  Country: ES (occurrence: ES)
  Receive Date: 20190916
  Receipt Date: 20191211
  Transmission Date: 20200122
  Serious: Yes (Other)
  Sender: FDA-Public Use
  Company Number: ES-JNJFOC-20190911148

PATIENT
  Age: 41 Year
  Sex: Male

DRUGS (25)
  1. VOLTAREN [Suspect]
     Active Substance: DICLOFENAC SODIUM
     Indication: MIGRAINE
     Dosage: UNK, ABUSE
     Route: 065
  2. RELPAX [Suspect]
     Active Substance: ELETRIPTAN HYDROBROMIDE
     Indication: MIGRAINE
     Dosage: UNK, ABUSE
     Route: 065
  3. IBUPROFEN. [Suspect]
     Active Substance: IBUPROFEN
     Indication: MIGRAINE
     Dosage: ABUSE
     Route: 065
  4. TOPIRAMATE. [Suspect]
     Active Substance: TOPIRAMATE
     Indication: MIGRAINE
     Dosage: 25 MG, QD, ABBUSE
     Route: 065
     Dates: start: 200906, end: 200906
  5. TRYPTIZOL [Suspect]
     Active Substance: AMITRIPTYLINE HYDROCHLORIDE
     Dosage: 10 MG, QD?ABUSE
     Route: 065
     Dates: start: 201211
  6. MAXALT [Suspect]
     Active Substance: RIZATRIPTAN BENZOATE
     Indication: MIGRAINE
     Dosage: UNK, ABUSE
     Route: 065
  7. BOTOX [Suspect]
     Active Substance: ONABOTULINUMTOXINA
     Dosage: ABUSE
     Route: 065
     Dates: start: 201110, end: 201110
  8. BOTOX [Suspect]
     Active Substance: ONABOTULINUMTOXINA
     Dosage: 150 IU, (150 IU,1 IN 1 D), ABUSE
     Route: 065
     Dates: start: 20130307
  9. FLERUDIN [Suspect]
     Active Substance: FLUNARIZINE HYDROCHLORIDE
     Indication: MIGRAINE
     Route: 065
  10. LEXATIN                            /00424801/ [Suspect]
     Active Substance: BROMAZEPAM
     Indication: MIGRAINE
     Dosage: 3 MG, QD, ABUSE
     Route: 065
  11. XEOMIN [Suspect]
     Active Substance: INCOBOTULINUMTOXINA
     Indication: MIGRAINE
     Dosage: 150 IU, QD, ABUSE
     Route: 065
     Dates: start: 20130307
  12. TRYPTIZOL [Suspect]
     Active Substance: AMITRIPTYLINE HYDROCHLORIDE
     Indication: MIGRAINE
     Dosage: 1 DF, QD
     Route: 065
  13. HEMICRANEAL                        /05699501/ [Suspect]
     Active Substance: ACETAMINOPHEN\CAFFEINE\ERGOTAMINE TARTRATE
     Indication: MIGRAINE
     Dosage: UNK, ABUSE
     Route: 065
  14. PREDNISONE. [Suspect]
     Active Substance: PREDNISONE
     Indication: MIGRAINE
     Dosage: 60 MG, QD (60 MG 1 IN 1 DAY), ABUSE
     Route: 065
  15. LAMOTRIGINE. [Suspect]
     Active Substance: LAMOTRIGINE
     Indication: MIGRAINE
     Dosage: 50 MG, QD, ABUSE OFF LABEL USE
     Route: 065
     Dates: start: 201110
  16. TOPIRAMATE. [Suspect]
     Active Substance: TOPIRAMATE
     Dosage: 50 MG, UNK, ABUSE
     Route: 065
  17. PAROXETINE HYDROCHLORIDE. [Suspect]
     Active Substance: PAROXETINE HYDROCHLORIDE
     Indication: MIGRAINE
     Dosage: ABUSE
     Route: 065
  18. BOTOX [Suspect]
     Active Substance: ONABOTULINUMTOXINA
     Dosage: ABUSE
     Route: 065
  19. BOTOX [Suspect]
     Active Substance: ONABOTULINUMTOXINA
     Dosage: SINGLE, ABUSE
     Route: 065
  20. AMITRIPTILINA [Suspect]
     Active Substance: AMITRIPTYLINE HYDROCHLORIDE
     Indication: MIGRAINE
     Dosage: 10 MG, QD, ABUSE
     Route: 065
     Dates: start: 201110
  21. NOLOTIL                            /06276702/ [Suspect]
     Active Substance: METAMIZOLE MAGNESIUM
     Indication: MIGRAINE
     Dosage: ABUSE
     Route: 065
  22. DEPAKINE                           /00228502/ [Suspect]
     Active Substance: VALPROATE SODIUM
     Indication: MIGRAINE
     Dosage: 500 MG, QD, ABUSE
     Route: 065
     Dates: start: 201211
  23. ZOMIG [Suspect]
     Active Substance: ZOLMITRIPTAN
     Indication: MIGRAINE
     Dosage: UNK, ABUSE
     Route: 065
  24. BOTOX [Suspect]
     Active Substance: ONABOTULINUMTOXINA
     Indication: MIGRAINE
     Dosage: 100 IU (1 IN 1 D), ABUSE
     Route: 065
     Dates: start: 201110
  25. LISALGIL [Suspect]
     Active Substance: METAMIZOLE SODIUM
     Indication: MIGRAINE
     Dosage: ABUSE
     Route: 065

REACTIONS (5)
  - Drug abuse [Unknown]
  - Paraesthesia [Unknown]
  - Insomnia [Unknown]
  - Product use in unapproved indication [Unknown]
  - Therapy partial responder [Unknown]

NARRATIVE: CASE EVENT DATE: 200902
